FAERS Safety Report 18541134 (Version 3)
Quarter: 2021Q2

REPORT INFORMATION
  Report Type: Spontaneous
  Country: US (occurrence: US)
  Receive Date: 20201124
  Receipt Date: 20210413
  Transmission Date: 20210717
  Serious: Yes (Hospitalization, Disabling, Other)
  Sender: FDA-Public Use
  Company Number: US-PURDUE-USA-2020-0172862

PATIENT
  Sex: Male

DRUGS (25)
  1. OXYCONTIN [Suspect]
     Active Substance: OXYCODONE HYDROCHLORIDE
     Dosage: 40MG
     Route: 048
     Dates: start: 20140701
  2. OXYCONTIN [Suspect]
     Active Substance: OXYCODONE HYDROCHLORIDE
     Dosage: 40MG
     Route: 048
     Dates: start: 201801
  3. OXYCONTIN [Suspect]
     Active Substance: OXYCODONE HYDROCHLORIDE
     Dosage: 40MG
     Route: 048
     Dates: start: 201812
  4. OXYCODONE HCL CR TABLETS (SIMILAR TO NDA 22?272) [Suspect]
     Active Substance: OXYCODONE HYDROCHLORIDE
     Dosage: 40MG
     Route: 048
     Dates: start: 201812
  5. HYDROCODONE BITARTRATE AND ACETAMINOPHEN [Suspect]
     Active Substance: ACETAMINOPHEN\HYDROCODONE BITARTRATE
     Indication: PAIN
     Dosage: 5MG/500MG
     Route: 048
     Dates: start: 20110620
  6. HYDROCODONE BITARTRATE AND ACETAMINOPHEN [Suspect]
     Active Substance: ACETAMINOPHEN\HYDROCODONE BITARTRATE
     Dosage: 10MG/325MG
     Route: 048
     Dates: start: 20121026
  7. TRAMADOL CR TABLETS (RHODES 21?745) [Suspect]
     Active Substance: TRAMADOL
     Indication: PAIN
     Dosage: 50MG
     Route: 048
     Dates: start: 20130121
  8. OXYCONTIN [Suspect]
     Active Substance: OXYCODONE HYDROCHLORIDE
     Dosage: 40 MG
     Route: 048
     Dates: start: 20140723, end: 20150909
  9. OXYCODONE HCL TABLETS (RHODES 91?490) [Suspect]
     Active Substance: OXYCODONE HYDROCHLORIDE
     Indication: PAIN
     Dosage: 15MG
     Route: 048
     Dates: start: 20130226
  10. HYDROCODONE BITARTRATE AND ACETAMINOPHEN [Suspect]
     Active Substance: ACETAMINOPHEN\HYDROCODONE BITARTRATE
     Dosage: 7.5MG/750MG
     Route: 048
     Dates: start: 20120314
  11. OXYCODONE HCL TABLETS (RHODES 91?490) [Suspect]
     Active Substance: OXYCODONE HYDROCHLORIDE
     Dosage: 30MG
     Route: 048
     Dates: start: 20150909
  12. OXYCODONE/ ACETAMINOPHEN TABLETS [Suspect]
     Active Substance: ACETAMINOPHEN\OXYCODONE HYDROCHLORIDE
     Indication: PAIN
     Dosage: 7.5MG/325MG
     Route: 048
     Dates: start: 201211
  13. EMBEDA [Suspect]
     Active Substance: MORPHINE SULFATE\NALTREXONE HYDROCHLORIDE
     Indication: PAIN
     Dosage: 50?2MG
     Route: 065
     Dates: start: 201803, end: 201811
  14. OXYCODONE HCL CR TABLETS (SIMILAR TO NDA 22?272) [Suspect]
     Active Substance: OXYCODONE HYDROCHLORIDE
     Indication: PAIN
     Dosage: 40MG
     Route: 048
     Dates: start: 20150909
  15. OXYCODONE HCL TABLETS (RHODES 91?490) [Suspect]
     Active Substance: OXYCODONE HYDROCHLORIDE
     Dosage: 15MG
     Route: 048
     Dates: start: 20140701
  16. HYDROCODONE BITARTRATE AND ACETAMINOPHEN [Suspect]
     Active Substance: ACETAMINOPHEN\HYDROCODONE BITARTRATE
     Dosage: 7.5MG/750MG
     Route: 048
     Dates: start: 20110629
  17. HYDROCODONE BITARTRATE AND ACETAMINOPHEN [Suspect]
     Active Substance: ACETAMINOPHEN\HYDROCODONE BITARTRATE
     Dosage: 10MG/325MG
     Route: 048
     Dates: start: 20111014
  18. HYDROCODONE BITARTRATE AND ACETAMINOPHEN [Suspect]
     Active Substance: ACETAMINOPHEN\HYDROCODONE BITARTRATE
     Dosage: 7.5MG/750MG
     Route: 048
     Dates: start: 20120803
  19. OXYCONTIN [Suspect]
     Active Substance: OXYCODONE HYDROCHLORIDE
     Indication: PAIN
     Dosage: 30MG
     Route: 048
     Dates: start: 20140618
  20. EMBEDA [Suspect]
     Active Substance: MORPHINE SULFATE\NALTREXONE HYDROCHLORIDE
     Dosage: 60?2.4MG
     Dates: start: 201803, end: 201811
  21. MORPHINE SULFATE EXTENDED?RELEASE TABLETS (RHODES 74?769) [Suspect]
     Active Substance: MORPHINE SULFATE
     Indication: PAIN
     Dosage: UNK
     Route: 048
  22. OXYCODONE HCL TABLETS (RHODES 91?490) [Suspect]
     Active Substance: OXYCODONE HYDROCHLORIDE
     Dosage: 30MG
     Route: 048
     Dates: start: 20140723, end: 20150909
  23. OXYCODONE HCL TABLETS (RHODES 91?490) [Suspect]
     Active Substance: OXYCODONE HYDROCHLORIDE
     Dosage: 30MG
     Route: 048
     Dates: start: 201812
  24. OXYCODONE/ ACETAMINOPHEN TABLETS [Suspect]
     Active Substance: ACETAMINOPHEN\OXYCODONE HYDROCHLORIDE
     Dosage: UNK
  25. HYDROCODONE BITARTRATE AND ACETAMINOPHEN [Suspect]
     Active Substance: ACETAMINOPHEN\HYDROCODONE BITARTRATE
     Dosage: 10MG/325MG
     Route: 048
     Dates: start: 201211

REACTIONS (25)
  - Drug dependence [Unknown]
  - Withdrawal syndrome [Unknown]
  - Hyperhidrosis [Unknown]
  - Dyspepsia [Unknown]
  - Erectile dysfunction [Unknown]
  - Libido decreased [Unknown]
  - Depression [Unknown]
  - Nerve block [Unknown]
  - Breathing-related sleep disorder [Unknown]
  - Pruritus [Unknown]
  - Hypogonadism [Unknown]
  - Intervertebral disc protrusion [Unknown]
  - Dental caries [Unknown]
  - Sleep disorder [Unknown]
  - Hyperaesthesia [Unknown]
  - Blood pressure increased [Unknown]
  - Weight increased [Unknown]
  - Disturbance in attention [Unknown]
  - Constipation [Unknown]
  - Anxiety [Unknown]
  - Confusional state [Unknown]
  - Impaired work ability [Unknown]
  - Dry mouth [Unknown]
  - Memory impairment [Unknown]
  - Dry skin [Unknown]

NARRATIVE: CASE EVENT DATE: 20111014
